FAERS Safety Report 15118055 (Version 2)
Quarter: 2018Q3

REPORT INFORMATION
  Report Type: Report from Study
  Country: MX (occurrence: MX)
  Receive Date: 20180707
  Receipt Date: 20180722
  Transmission Date: 20181010
  Serious: Yes (Death)
  Sender: FDA-Public Use
  Company Number: MX-UCBSA-2018029726

PATIENT
  Age: 80 Year
  Sex: Male
  Weight: 80 kg

DRUGS (1)
  1. LEVETIRACETAM. [Suspect]
     Active Substance: LEVETIRACETAM
     Indication: SEIZURE
     Dosage: STRENGTH:  100MG/ML
     Route: 048
     Dates: end: 20170224

REACTIONS (1)
  - Cardiac arrest [Fatal]

NARRATIVE: CASE EVENT DATE: 20170224
